FAERS Safety Report 6415733-5 (Version None)
Quarter: 2009Q4

REPORT INFORMATION
  Report Type: 
  Country: None (occurrence: None)
  Receive Date: 20091027
  Receipt Date: 20091014
  Transmission Date: 20100525
  Serious: Yes (Hospitalization)
  Sender: FDA-Public Use
  Company Number: US-PFIZER INC-2009273596

PATIENT
  Sex: Female
  Weight: 63.492 kg

DRUGS (2)
  1. CHANTIX [Suspect]
     Indication: SMOKING CESSATION THERAPY
     Dosage: 1 MG, 2X/DAY
     Dates: start: 20090801, end: 20090915
  2. PENICILLINE [Suspect]

REACTIONS (9)
  - BURNING SENSATION [None]
  - CYANOSIS [None]
  - DYSPNOEA [None]
  - GLOSSODYNIA [None]
  - LIP DRY [None]
  - ORAL DISCOMFORT [None]
  - PARAESTHESIA ORAL [None]
  - PULMONARY OEDEMA [None]
  - RASH [None]
